FAERS Safety Report 12156664 (Version 5)
Quarter: 2016Q2

REPORT INFORMATION
  Report Type: Spontaneous
  Country: US (occurrence: US)
  Receive Date: 20160307
  Receipt Date: 20160428
  Transmission Date: 20160815
  Serious: No
  Sender: FDA-Public Use
  Company Number: US-ACTELION PHARMACEUTICALS US, INC.-A-NJ2016-131666

PATIENT
  Age: 80 Year
  Sex: Female

DRUGS (17)
  1. IRBESARTAN. [Concomitant]
     Active Substance: IRBESARTAN
     Dosage: 300 MG, QPM
  2. INDAPAMIDE. [Concomitant]
     Active Substance: INDAPAMIDE
     Dosage: 2.5 MG, QD
  3. CINNAMON. [Concomitant]
     Active Substance: CINNAMON
  4. FLUVASTATIN [Concomitant]
     Active Substance: FLUVASTATIN SODIUM
  5. CALCIUM [Concomitant]
     Active Substance: CALCIUM
  6. OPSUMIT [Suspect]
     Active Substance: MACITENTAN
     Indication: PULMONARY ARTERIAL HYPERTENSION
     Dosage: 10 MG, QD
     Route: 048
     Dates: start: 20160203, end: 20160306
  7. PIOGLITAZONE. [Concomitant]
     Active Substance: PIOGLITAZONE
     Dosage: 15 MG, QD
  8. BYETTA [Concomitant]
     Active Substance: EXENATIDE
     Dosage: 50 MG, BID
  9. BUMETANIDE. [Concomitant]
     Active Substance: BUMETANIDE
     Dosage: 0.5 MG, M, W, F
  10. DOXAZOSIN [Concomitant]
     Active Substance: DOXAZOSIN\DOXAZOSIN MESYLATE
     Dosage: 1 MG, QD
  11. POTASSIUM [Concomitant]
     Active Substance: POTASSIUM
  12. WARFARIN [Concomitant]
     Active Substance: WARFARIN
     Dosage: 2 MG, QD
  13. LESCOL [Concomitant]
     Active Substance: FLUVASTATIN SODIUM
     Dosage: 80 MG, QD
  14. VENASTAT [Concomitant]
     Active Substance: HORSE CHESTNUT
  15. SILDENAFIL. [Concomitant]
     Active Substance: SILDENAFIL
     Dosage: 20 MG, QD
     Dates: start: 2016
  16. SILDENAFIL. [Concomitant]
     Active Substance: SILDENAFIL
     Dosage: 10 MG, QD
     Route: 048
     Dates: start: 2016
  17. SOTALOL. [Concomitant]
     Active Substance: SOTALOL
     Dosage: 80 MG, BID

REACTIONS (7)
  - Abdominal discomfort [Recovered/Resolved]
  - Weight increased [Not Recovered/Not Resolved]
  - Memory impairment [Unknown]
  - Blood glucose increased [Not Recovered/Not Resolved]
  - Dyspnoea [Not Recovered/Not Resolved]
  - Oedema peripheral [Recovering/Resolving]
  - Chest pain [Recovered/Resolved]

NARRATIVE: CASE EVENT DATE: 201602
